FAERS Safety Report 7655539-2 (Version None)
Quarter: 2011Q3

REPORT INFORMATION
  Report Type: 
  Country: None (occurrence: None)
  Receive Date: 20110804
  Receipt Date: 20110803
  Transmission Date: 20111222
  Serious: Yes (Death, Hospitalization)
  Sender: FDA-Public Use
  Company Number: GB-BRISTOL-MYERS SQUIBB COMPANY-15944689

PATIENT
  Age: 39 Year
  Sex: Female

DRUGS (15)
  1. METOCLOPRAMIDE [Concomitant]
  2. ETOPOSIDE [Suspect]
     Indication: ACUTE MYELOID LEUKAEMIA
     Dates: start: 20110630, end: 20110706
  3. ETOPOSIDE [Suspect]
     Indication: MYELODYSPLASTIC SYNDROME
     Dates: start: 20110630, end: 20110706
  4. ALLOPURINOL [Concomitant]
     Dates: start: 20110630, end: 20110705
  5. METOCLOPRAMIDE [Concomitant]
     Dates: start: 20110626
  6. MYLOTARG [Suspect]
     Indication: ACUTE MYELOID LEUKAEMIA
     Dosage: UNIT DOSE.
     Dates: start: 20110630, end: 20110706
  7. SIMPLE LINCTUS [Concomitant]
     Dates: start: 20110704
  8. CYTARABINE [Suspect]
     Indication: ACUTE MYELOID LEUKAEMIA
     Dosage: SOL FOR INJECTION.
     Dates: start: 20110630, end: 20110706
  9. CYTARABINE [Suspect]
     Indication: MYELODYSPLASTIC SYNDROME
     Dosage: SOL FOR INJECTION.
     Dates: start: 20110630, end: 20110706
  10. DAUNORUBICIN HCL [Suspect]
     Indication: ACUTE MYELOID LEUKAEMIA
     Dates: start: 20110630, end: 20110706
  11. DAUNORUBICIN HCL [Suspect]
     Indication: MYELODYSPLASTIC SYNDROME
     Dates: start: 20110630, end: 20110706
  12. ONDANSETRON [Concomitant]
     Dates: start: 20110630, end: 20110705
  13. MYLOTARG [Suspect]
     Indication: MYELODYSPLASTIC SYNDROME
     Dosage: UNIT DOSE.
     Dates: start: 20110630, end: 20110706
  14. ZOPLICONE [Concomitant]
     Dates: start: 20110628
  15. CODEINE SULFATE [Concomitant]
     Dates: start: 20110622, end: 20110629

REACTIONS (4)
  - NEOPLASM MALIGNANT [None]
  - INFECTION [None]
  - MULTI-ORGAN FAILURE [None]
  - NEUTROPENIC SEPSIS [None]
